FAERS Safety Report 9736293 (Version 3)
Quarter: 2014Q1

REPORT INFORMATION
  Report Type: Spontaneous
  Country: JP (occurrence: JP)
  Receive Date: 20131206
  Receipt Date: 20140228
  Transmission Date: 20141002
  Serious: Yes (Other)
  Sender: FDA-Public Use
  Company Number: JP-009507513-1312JPN003085

PATIENT
  Age: 83 Year
  Sex: Male

DRUGS (2)
  1. JANUVIA TABLETS 100MG [Suspect]
     Dosage: DAILY DOSAGE UNKNOWN
     Route: 048
  2. CRAVIT [Suspect]
     Dosage: DAILY DOSAGE UNKNOWN
     Route: 065

REACTIONS (1)
  - Pancytopenia [Unknown]
